FAERS Safety Report 6935413-7 (Version None)
Quarter: 2010Q3

REPORT INFORMATION
  Report Type: 
  Country: None (occurrence: None)
  Receive Date: 20100823
  Receipt Date: 20100812
  Transmission Date: 20110219
  Serious: Yes (Hospitalization)
  Sender: FDA-Public Use
  Company Number: US-BIOGENIDEC-2010BI028460

PATIENT
  Sex: Female

DRUGS (1)
  1. AVONEX [Suspect]
     Indication: MULTIPLE SCLEROSIS
     Route: 030
     Dates: start: 20050101

REACTIONS (8)
  - ARTHROPATHY [None]
  - FAECAL INCONTINENCE [None]
  - ILL-DEFINED DISORDER [None]
  - INCONTINENCE [None]
  - MALAISE [None]
  - NEGATIVE THOUGHTS [None]
  - PAIN [None]
  - SELF-INJURIOUS IDEATION [None]
